FAERS Safety Report 23276015 (Version 1)
Quarter: 2023Q4

REPORT INFORMATION
  Report Type: Report from Study
  Country: US (occurrence: US)
  Receive Date: 20231208
  Receipt Date: 20231208
  Transmission Date: 20240110
  Serious: Yes (Hospitalization)
  Sender: FDA-Public Use
  Company Number: US-Eisai Medical Research-EC-2015-010429

PATIENT
  Age: 42 Year
  Sex: Female

DRUGS (16)
  1. LENVIMA [Suspect]
     Active Substance: LENVATINIB
     Indication: Thyroid cancer
     Dosage: THERAPY STOPPED SOMEWHERE IN --2015
     Route: 048
     Dates: start: 20150819
  2. LENVIMA [Suspect]
     Active Substance: LENVATINIB
     Route: 048
     Dates: start: 2015, end: 201510
  3. LENVIMA [Suspect]
     Active Substance: LENVATINIB
     Route: 048
     Dates: start: 201510, end: 201512
  4. LENVIMA [Suspect]
     Active Substance: LENVATINIB
     Route: 048
     Dates: start: 201512
  5. LENVIMA [Suspect]
     Active Substance: LENVATINIB
     Route: 048
     Dates: start: 20170209
  6. LENVIMA [Suspect]
     Active Substance: LENVATINIB
     Dosage: MISSED ONE DOSE
     Route: 048
     Dates: start: 20220322, end: 20221206
  7. LENVIMA [Suspect]
     Active Substance: LENVATINIB
     Route: 048
  8. LISINOPRIL [Suspect]
     Active Substance: LISINOPRIL
     Indication: Product used for unknown indication
     Dosage: {FREQUENCY TEXT} UNKNOWN
     Route: 048
  9. LISINOPRIL [Suspect]
     Active Substance: LISINOPRIL
     Dosage: {FREQUENCY TEXT} UNKNOWN
     Route: 048
  10. FLUTICASONE [Suspect]
     Active Substance: FLUTICASONE
     Indication: Product used for unknown indication
     Dosage: DOSE AND FREQUENCY UNKNOWN
  11. NAPROSYN [Interacting]
     Active Substance: NAPROXEN
     Indication: Product used for unknown indication
     Dosage: UNKNOWN?{FREQUENCY TEXT} UNKNOWN
     Route: 048
  12. LEVOTHYROXINE SODIUM [Concomitant]
     Active Substance: LEVOTHYROXINE SODIUM
  13. OXYCODONE [Concomitant]
     Active Substance: OXYCODONE
  14. LIDOCAINE [Concomitant]
     Active Substance: LIDOCAINE
  15. AUGMENTIN [Concomitant]
     Active Substance: AMOXICILLIN\CLAVULANATE POTASSIUM
  16. METFORMIN [Concomitant]
     Active Substance: METFORMIN HYDROCHLORIDE

REACTIONS (48)
  - Rectal haemorrhage [Recovered/Resolved]
  - Drug interaction [Recovered/Resolved]
  - Pain in extremity [Unknown]
  - Blister [Recovered/Resolved]
  - Pruritus [Recovered/Resolved]
  - Somnolence [Not Recovered/Not Resolved]
  - Blood pressure increased [Not Recovered/Not Resolved]
  - Weight decreased [Unknown]
  - Swelling [Unknown]
  - Blood pressure fluctuation [Unknown]
  - Rash [Unknown]
  - Dermatitis acneiform [Unknown]
  - Pain in jaw [Not Recovered/Not Resolved]
  - Diarrhoea [Not Recovered/Not Resolved]
  - Hypersensitivity [Unknown]
  - Cystitis [Unknown]
  - Hypotension [Recovered/Resolved]
  - Heart rate increased [Recovered/Resolved]
  - Dizziness [Recovered/Resolved]
  - Anxiety [Not Recovered/Not Resolved]
  - Feeling of body temperature change [Unknown]
  - Oropharyngeal pain [Unknown]
  - Arthralgia [Not Recovered/Not Resolved]
  - Dysphonia [Not Recovered/Not Resolved]
  - Dyspnoea [Unknown]
  - Nausea [Not Recovered/Not Resolved]
  - Aphonia [Not Recovered/Not Resolved]
  - Cancer pain [Not Recovered/Not Resolved]
  - Malignant neoplasm progression [Not Recovered/Not Resolved]
  - Skin atrophy [Unknown]
  - Bruxism [Unknown]
  - Blood calcium decreased [Not Recovered/Not Resolved]
  - Sinus disorder [Not Recovered/Not Resolved]
  - White blood cell count decreased [Not Recovered/Not Resolved]
  - Blood iron decreased [Not Recovered/Not Resolved]
  - Sneezing [Unknown]
  - Rhinorrhoea [Unknown]
  - Epistaxis [Unknown]
  - Cough [Not Recovered/Not Resolved]
  - Palpitations [Recovered/Resolved]
  - Gastritis [Not Recovered/Not Resolved]
  - Palmar-plantar erythrodysaesthesia syndrome [Unknown]
  - Dyspepsia [Unknown]
  - Decreased appetite [Not Recovered/Not Resolved]
  - Fatigue [Not Recovered/Not Resolved]
  - Feeling hot [Unknown]
  - Vomiting [Unknown]
  - Food allergy [Unknown]

NARRATIVE: CASE EVENT DATE: 20150101
